FAERS Safety Report 10989881 (Version 1)
Quarter: 2015Q2

REPORT INFORMATION
  Report Type: Spontaneous
  Country: FR (occurrence: FR)
  Receive Date: 20150406
  Receipt Date: 20150406
  Transmission Date: 20150821
  Serious: Yes (Other)
  Sender: FDA-Public Use
  Company Number: FR-JNJFOC-20150213476

PATIENT
  Age: 32 Year
  Sex: Female
  Weight: 60 kg

DRUGS (2)
  1. TRIAFEMI [Suspect]
     Active Substance: ETHINYL ESTRADIOL\NORGESTREL
     Indication: ACNE
     Route: 048
     Dates: end: 20150130
  2. TRIAFEMI [Suspect]
     Active Substance: ETHINYL ESTRADIOL\NORGESTREL
     Indication: ORAL CONTRACEPTION
     Route: 048
     Dates: end: 20150130

REACTIONS (3)
  - Abortion spontaneous [Unknown]
  - Exposure during pregnancy [Recovered/Resolved]
  - Pregnancy on oral contraceptive [Recovered/Resolved]

NARRATIVE: CASE EVENT DATE: 201502
